FAERS Safety Report 20376194 (Version 2)
Quarter: 2022Q1

REPORT INFORMATION
  Report Type: Spontaneous
  Country: US (occurrence: US)
  Receive Date: 20220125
  Receipt Date: 20220315
  Transmission Date: 20220424
  Serious: No
  Sender: FDA-Public Use
  Company Number: US-PFIZER INC-202200106625

PATIENT
  Age: 71 Year
  Sex: Male
  Weight: 80.726 kg

DRUGS (4)
  1. INLYTA [Suspect]
     Active Substance: AXITINIB
     Indication: Renal cancer
     Dosage: 10 MG, 2X/DAY
     Dates: start: 202101
  2. INLYTA [Suspect]
     Active Substance: AXITINIB
     Dosage: 5 MG
  3. KEYTRUDA [Concomitant]
     Active Substance: PEMBROLIZUMAB
     Indication: Renal cancer
     Dosage: UNK UNK, EVERY 3 WEEKS
  4. KEYTRUDA [Concomitant]
     Active Substance: PEMBROLIZUMAB
     Dosage: UNK (EVERY 6 WEEKS)

REACTIONS (6)
  - Neoplasm progression [Unknown]
  - Diarrhoea infectious [Recovered/Resolved]
  - Diarrhoea [Recovered/Resolved]
  - Gastrointestinal infection [Recovered/Resolved]
  - Weight decreased [Unknown]
  - Illness [Unknown]

NARRATIVE: CASE EVENT DATE: 20211101
